FAERS Safety Report 4551016-6 (Version None)
Quarter: 2005Q1

REPORT INFORMATION
  Report Type: 
  Country: None (occurrence: None)
  Receive Date: 20050113
  Receipt Date: 20041104
  Transmission Date: 20050727
  Serious: No
  Sender: FDA-Public Use
  Company Number: US-BRISTOL-MYERS SQUIBB COMPANY-12756821

PATIENT
  Age: 49 Year
  Sex: Female

DRUGS (1)
  1. CARDIOLITE [Suspect]
     Indication: EXERCISE ELECTROCARDIOGRAM
     Route: 042
     Dates: start: 20041101, end: 20041101

REACTIONS (2)
  - ABDOMINAL PAIN [None]
  - DIZZINESS [None]
